FAERS Safety Report 7325421-9 (Version None)
Quarter: 2011Q1

REPORT INFORMATION
  Report Type: 
  Country: None (occurrence: None)
  Receive Date: 20110302
  Receipt Date: 20110217
  Transmission Date: 20110831
  Serious: Yes (Other)
  Sender: FDA-Public Use
  Company Number: BR-US-EMD SERONO, INC.-7044339

PATIENT
  Sex: Female

DRUGS (4)
  1. NAPRIX [Concomitant]
  2. ACETAMINOPHEN [Concomitant]
  3. REBIF [Suspect]
     Indication: RELAPSING-REMITTING MULTIPLE SCLEROSIS
     Dates: start: 20090514
  4. AMLODIPINE [Concomitant]

REACTIONS (7)
  - MULTIPLE SCLEROSIS RELAPSE [None]
  - MOOD ALTERED [None]
  - FATIGUE [None]
  - BLOOD PRESSURE INCREASED [None]
  - AMENORRHOEA [None]
  - WEIGHT INCREASED [None]
  - IRRITABILITY [None]
